FAERS Safety Report 25524686 (Version 1)
Quarter: 2025Q3

REPORT INFORMATION
  Report Type: Spontaneous
  Country: US (occurrence: None)
  Receive Date: 20250704
  Receipt Date: 20250704
  Transmission Date: 20251020
  Serious: Yes (unspecified)
  Sender: FDA-CTU
  Company Number: None

PATIENT
  Age: 62 Year
  Sex: Female

DRUGS (1)
  1. SIMPONI [Suspect]
     Active Substance: GOLIMUMAB
     Dosage: 50MG ONCE MONTHLY SUBCUTANEOUS?
     Route: 058

REACTIONS (3)
  - Sinusitis [None]
  - Dermatophytosis of nail [None]
  - Therapy interrupted [None]
